FAERS Safety Report 20488744 (Version 1)
Quarter: 2022Q1

REPORT INFORMATION
  Report Type: Spontaneous
  Country: US (occurrence: US)
  Receive Date: 20220218
  Receipt Date: 20220218
  Transmission Date: 20220423
  Serious: No
  Sender: FDA-Public Use
  Company Number: US-SA-SAC20220210000690

PATIENT
  Age: 15 Year
  Sex: Female

DRUGS (1)
  1. DUPIXENT [Suspect]
     Active Substance: DUPILUMAB
     Dosage: 300 MG, MG FREQUENCY OTHER
     Route: 058
     Dates: start: 20201118

REACTIONS (2)
  - Skin depigmentation [Unknown]
  - Cheilitis [Unknown]

NARRATIVE: CASE EVENT DATE: 20220207
